FAERS Safety Report 5732891-6 (Version None)
Quarter: 2008Q2

REPORT INFORMATION
  Report Type: 
  Country: None (occurrence: None)
  Receive Date: 20080509
  Receipt Date: 20080214
  Transmission Date: 20081010
  Serious: No
  Sender: FDA-Public Use
  Company Number: A0709658A

PATIENT
  Sex: Male

DRUGS (3)
  1. COREG CR [Suspect]
     Indication: HEART RATE INCREASED
     Dosage: 10MG PER DAY
     Route: 048
     Dates: start: 20080212
  2. COUMADIN [Concomitant]
  3. CARDIZEM [Concomitant]

REACTIONS (1)
  - DRUG INEFFECTIVE [None]
